FAERS Safety Report 8723942 (Version 2)
Quarter: 2012Q4

REPORT INFORMATION
  Report Type: 
  Country: JP (occurrence: JP)
  Receive Date: 20120815
  Receipt Date: 20121011
  Transmission Date: 20130627
  Serious: No
  Sender: FDA-Public Use
  Company Number: JP-AMGEN-JPNSP2012050228

PATIENT
  Age: 52 Year
  Sex: Female

DRUGS (3)
  1. RANMARK [Suspect]
     Indication: PRODUCT USED FOR UNKNOWN INDICATION
     Dosage: 120 mg, q4wk
     Route: 058
     Dates: start: 20120604
  2. FEMARA [Concomitant]
     Dosage: 2.5 mg, qd
     Route: 048
     Dates: start: 2010
  3. TS-1 [Concomitant]
     Dosage: Unknown
     Route: 048

REACTIONS (1)
  - Pathological fracture [Recovering/Resolving]
